FAERS Safety Report 7396865-4 (Version None)
Quarter: 2011Q2

REPORT INFORMATION
  Report Type: 
  Country: None (occurrence: None)
  Receive Date: 20110406
  Receipt Date: 20110401
  Transmission Date: 20111010
  Serious: Yes (Life-Threatening, Other)
  Sender: FDA-Public Use
  Company Number: IT-JNJFOC-20110400984

PATIENT
  Age: 35 Year
  Sex: Female

DRUGS (5)
  1. LODOTRA [Concomitant]
  2. FOLINA [Concomitant]
  3. AULIN [Concomitant]
  4. METHOTREXATE [Concomitant]
  5. REMICADE [Suspect]
     Indication: RHEUMATOID ARTHRITIS
     Route: 042

REACTIONS (4)
  - DYSPNOEA [None]
  - INFUSION RELATED REACTION [None]
  - TACHYCARDIA [None]
  - FLUSHING [None]
